FAERS Safety Report 19171490 (Version 1)
Quarter: 2021Q2

REPORT INFORMATION
  Report Type: Other
  Country: DE (occurrence: DE)
  Receive Date: 20210423
  Receipt Date: 20210423
  Transmission Date: 20210717
  Serious: Yes (Other)
  Sender: FDA-Public Use
  Company Number: DE-CELLTRION INC.-2021DE005352

PATIENT

DRUGS (5)
  1. HERCEPTIN [Suspect]
     Active Substance: TRASTUZUMAB
     Indication: BREAST CANCER
     Dosage: (PHARMACEUTICAL DOSE FORM: UNKNOWN)
     Route: 065
  2. HERZUMA [Suspect]
     Active Substance: TRASTUZUMAB-PKRB
     Indication: BREAST CANCER
     Dosage: 360 MG EVERY 3 WEEKS
     Route: 042
     Dates: start: 20200319
  3. IBU [Concomitant]
     Active Substance: IBUPROFEN
     Indication: PAIN
     Dosage: 400 MILLIGRAM
  4. PERJETA [Suspect]
     Active Substance: PERTUZUMAB
     Dosage: 420 MG (FREQUENCY: 0.33 WEEK)
     Route: 042
     Dates: start: 20200319
  5. PERJETA [Suspect]
     Active Substance: PERTUZUMAB
     Indication: BREAST CANCER
     Dosage: 420 MG
     Route: 042
     Dates: start: 20201117

REACTIONS (2)
  - Rheumatic disorder [Not Recovered/Not Resolved]
  - Condition aggravated [Not Recovered/Not Resolved]
